FAERS Safety Report 5032286-7 (Version None)
Quarter: 2006Q2

REPORT INFORMATION
  Report Type: 
  Country: None (occurrence: None)
  Receive Date: 20060622
  Receipt Date: 20060613
  Transmission Date: 20061013
  Serious: Yes (Hospitalization)
  Sender: FDA-Public Use
  Company Number: FR-JNJFOC-20060500932

PATIENT
  Age: 43 Year
  Sex: Female
  Weight: 56 kg

DRUGS (8)
  1. REMICADE [Suspect]
     Indication: RHEUMATOID ARTHRITIS
     Route: 042
  2. SPECIAFOLDINE [Concomitant]
     Indication: RHEUMATOID ARTHRITIS
     Route: 065
  3. TEGRETOL [Concomitant]
     Indication: DEPRESSION
     Route: 065
  4. SOLIAN [Concomitant]
     Indication: DEPRESSION
     Route: 065
  5. NOCTRAN [Concomitant]
     Route: 065
  6. NOCTRAN [Concomitant]
     Route: 065
  7. NOCTRAN [Concomitant]
     Indication: DEPRESSION
     Route: 065
  8. METHOTREXATE [Concomitant]
     Indication: RHEUMATOID ARTHRITIS
     Route: 065

REACTIONS (6)
  - ARTHRALGIA [None]
  - CHILLS [None]
  - DYSPNOEA [None]
  - HYPOTENSION [None]
  - INFUSION RELATED REACTION [None]
  - TREMOR [None]
